FAERS Safety Report 7191857-2 (Version None)
Quarter: 2010Q4

REPORT INFORMATION
  Report Type: 
  Country: None (occurrence: None)
  Receive Date: 20101223
  Receipt Date: 20101216
  Transmission Date: 20110411
  Serious: Yes (Congenital Anomaly, Other)
  Sender: FDA-Public Use
  Company Number: US-PFIZER INC-2010145885

PATIENT

DRUGS (6)
  1. NEURONTIN [Suspect]
     Indication: ANXIETY
     Dosage: 600 MG, 3X/DAY
     Route: 064
     Dates: start: 20090717, end: 20100202
  2. CHANTIX [Suspect]
     Indication: SMOKING CESSATION THERAPY
     Dosage: 0.1 MG TO 0.2 MG ONE TO TWO TIMES PER DAY
     Route: 064
     Dates: start: 20100105, end: 20100202
  3. AMBIEN [Suspect]
     Indication: SLEEP DISORDER
     Dosage: 5 MG, AS NEEDED
     Route: 064
     Dates: start: 20090904, end: 20100202
  4. AMBIEN [Suspect]
     Indication: INSOMNIA
  5. LAMICTAL [Suspect]
     Indication: BIPOLAR DISORDER
     Dosage: 200 MG, 1X/DAY
     Route: 064
     Dates: start: 20090717, end: 20100202
  6. ADDERALL XR 10 [Suspect]
     Indication: ATTENTION DEFICIT/HYPERACTIVITY DISORDER
     Dosage: 25 MG, EVERY MORNING
     Route: 064
     Dates: start: 20080926, end: 20100202

REACTIONS (2)
  - CLEFT PALATE [None]
  - DRUG EXPOSURE DURING PREGNANCY [None]
